FAERS Safety Report 15277495 (Version 7)
Quarter: 2019Q1

REPORT INFORMATION
  Report Type: Report from Study
  Country: None (occurrence: DZ)
  Receive Date: 20180814
  Receipt Date: 20190115
  Transmission Date: 20190417
  Serious: Yes (Death, Hospitalization, Other)
  Sender: FDA-Public Use
  Company Number: DZ-ABBVIE-18P-003-2444940-00

PATIENT
  Age: 70 Year
  Sex: Male
  Weight: 80 kg

DRUGS (7)
  1. VENETOCLAX. [Suspect]
     Active Substance: VENETOCLAX
     Indication: MYELODYSPLASTIC SYNDROME
     Route: 048
     Dates: start: 20180803, end: 20180824
  2. VENETOCLAX. [Suspect]
     Active Substance: VENETOCLAX
     Route: 048
     Dates: start: 20180925
  3. VENETOCLAX. [Suspect]
     Active Substance: VENETOCLAX
     Route: 048
     Dates: start: 20180918, end: 201809
  4. ATHYMIL [Concomitant]
     Active Substance: MIANSERIN HYDROCHLORIDE
     Indication: INSOMNIA
     Dates: start: 20180715
  5. POSACONAZOLE [Concomitant]
     Active Substance: POSACONAZOLE
     Indication: BRONCHOPULMONARY ASPERGILLOSIS
  6. VENETOCLAX. [Suspect]
     Active Substance: VENETOCLAX
     Indication: ACUTE MYELOID LEUKAEMIA
     Route: 048
     Dates: start: 20180827, end: 20180830
  7. ATHYMIL [Concomitant]
     Active Substance: MIANSERIN HYDROCHLORIDE
     Indication: ANXIETY

REACTIONS (10)
  - Septic shock [Recovered/Resolved]
  - Neutropenia [Recovered/Resolved]
  - Oral infection [Unknown]
  - Neutropenia [Unknown]
  - Off label use [Unknown]
  - Cardiac failure [Fatal]
  - Tachycardia [Unknown]
  - Respiratory distress [Fatal]
  - Thrombocytopenia [Recovered/Resolved]
  - Hypotension [Recovered/Resolved]

NARRATIVE: CASE EVENT DATE: 2018
